FAERS Safety Report 17509797 (Version 1)
Quarter: 2020Q1

REPORT INFORMATION
  Report Type: Report from Study
  Country: CO (occurrence: CO)
  Receive Date: 20200306
  Receipt Date: 20200306
  Transmission Date: 20200409
  Serious: Yes (Life-Threatening, Hospitalization, Other)
  Sender: FDA-Public Use
  Company Number: CO-ROCHE-2475548

PATIENT
  Sex: Female

DRUGS (2)
  1. ACTEMRA [Suspect]
     Active Substance: TOCILIZUMAB
     Indication: PRODUCT USED FOR UNKNOWN INDICATION
     Route: 065
  2. LORATADINE. [Concomitant]
     Active Substance: LORATADINE

REACTIONS (12)
  - Foot fracture [Unknown]
  - Limb injury [Unknown]
  - Ephelides [Unknown]
  - Pyrexia [Unknown]
  - Malaise [Unknown]
  - Apparent death [Unknown]
  - Swollen tongue [Unknown]
  - Gastrooesophageal reflux disease [Unknown]
  - Pain [Unknown]
  - Pain in extremity [Unknown]
  - Poisoning [Unknown]
  - Localised infection [Unknown]
